FAERS Safety Report 6890031-4 (Version None)
Quarter: 2010Q3

REPORT INFORMATION
  Report Type: 
  Country: None (occurrence: None)
  Receive Date: 20100730
  Receipt Date: 20080711
  Transmission Date: 20110219
  Serious: No
  Sender: FDA-Public Use
  Company Number: US-PFIZER INC-2008054056

PATIENT
  Sex: Male
  Weight: 90.909 kg

DRUGS (11)
  1. LIPITOR [Suspect]
     Indication: BLOOD CHOLESTEROL
     Route: 048
     Dates: start: 20080101, end: 20080101
  2. PROVIGIL [Concomitant]
  3. HERBAL PREPARATION [Concomitant]
  4. ALL OTHER THERAPEUTIC PRODUCTS [Concomitant]
  5. CYMBALTA [Concomitant]
  6. ISOSORBIDE [Concomitant]
  7. AVODART [Concomitant]
  8. BENICAR [Concomitant]
  9. INSULIN ASPART/PROTAMINE [Concomitant]
  10. NEXIUM [Concomitant]
  11. FUROSEMIDE [Concomitant]

REACTIONS (2)
  - INSOMNIA [None]
  - MUSCLE SPASMS [None]
